FAERS Safety Report 9137377 (Version 1)
Quarter: 2013Q1

REPORT INFORMATION
  Report Type: Spontaneous
  Country: US (occurrence: US)
  Receive Date: 20130304
  Receipt Date: 20130304
  Transmission Date: 20140127
  Serious: No
  Sender: FDA-Public Use
  Company Number: US-ENDO PHARMACEUTICALS INC.-ENDC20120041

PATIENT
  Sex: Male

DRUGS (1)
  1. ENDOCET [Suspect]
     Indication: PAIN IN EXTREMITY
     Dosage: UNK
     Route: 048
     Dates: start: 20120709

REACTIONS (2)
  - Spontaneous penile erection [Unknown]
  - Therapeutic response unexpected [Unknown]
